FAERS Safety Report 4456827-3 (Version None)
Quarter: 2004Q3

REPORT INFORMATION
  Report Type: 
  Country: None (occurrence: None)
  Receive Date: 20040923
  Receipt Date: 20040901
  Transmission Date: 20050211
  Serious: Yes (Other)
  Sender: FDA-Public Use
  Company Number: US-AMGEN-US087283

PATIENT
  Age: 50 Year
  Sex: Male
  Weight: 36.3 kg

DRUGS (8)
  1. SENSIPAR [Suspect]
     Indication: HYPERPARATHYROIDISM SECONDARY
     Route: 048
     Dates: start: 20040712, end: 20040801
  2. LOPRESSOR [Concomitant]
  3. HYDRALAZINE HCL [Concomitant]
  4. MINOXIDIL [Concomitant]
  5. CLONIDINE HCL [Concomitant]
  6. LIPITOR [Concomitant]
  7. NIFEDIPINE [Concomitant]
  8. FUROSEMIDE [Concomitant]

REACTIONS (2)
  - ABDOMINAL DISCOMFORT [None]
  - OEDEMATOUS PANCREATITIS [None]
